FAERS Safety Report 19847685 (Version 1)
Quarter: 2021Q3

REPORT INFORMATION
  Report Type: Report from Study
  Country: FR (occurrence: FR)
  Receive Date: 20210917
  Receipt Date: 20210917
  Transmission Date: 20211014
  Serious: Yes (Hospitalization)
  Sender: FDA-Public Use
  Company Number: FR-SERVIER-S21006715

PATIENT

DRUGS (8)
  1. TN UNSPECIFIED [Concomitant]
     Indication: ACUTE LYMPHOCYTIC LEUKAEMIA
     Dosage: 15 MG
     Route: 037
     Dates: start: 20210322, end: 20210406
  2. TN UNSPECIFIED [DAUNORUBICIN HYDROCHLORIDE] [Suspect]
     Active Substance: DAUNORUBICIN HYDROCHLORIDE
     Indication: ACUTE LYMPHOCYTIC LEUKAEMIA
     Dosage: 22 MG
     Route: 042
     Dates: start: 20210319, end: 20210402
  3. TN UNSPECIFIED (VINCRISTINE SULFATE) [Suspect]
     Active Substance: VINCRISTINE SULFATE
     Indication: ACUTE LYMPHOCYTIC LEUKAEMIA
     Dosage: 1.3 MG
     Route: 042
     Dates: start: 20210319, end: 20210521
  4. PEGASPARGASE [Suspect]
     Active Substance: PEGASPARGASE
     Indication: ACUTE LYMPHOCYTIC LEUKAEMIA
     Dosage: 2225 IU
     Route: 042
     Dates: start: 20210322, end: 20210517
  5. TN UNSPECIFIED [METHOTREXATE] [Concomitant]
     Active Substance: METHOTREXATE
     Indication: ACUTE LYMPHOCYTIC LEUKAEMIA
     Dosage: 12 MG
     Route: 037
     Dates: start: 20210322, end: 20210406
  6. TN UNSPECIFIED [CYTARABINE] [Suspect]
     Active Substance: CYTARABINE
     Indication: ACUTE LYMPHOCYTIC LEUKAEMIA
     Dosage: 65 MG
     Route: 042
     Dates: start: 20210326, end: 20210506
  7. TN UNSPECIFIED [CYCLOPHOSPHAMIDE] [Suspect]
     Active Substance: CYCLOPHOSPHAMIDE
     Indication: ACUTE LYMPHOCYTIC LEUKAEMIA
     Dosage: 900 MG
     Route: 042
     Dates: start: 20210423, end: 20210423
  8. TN UNSPECIFIED [CYTARABINE] [Suspect]
     Active Substance: CYTARABINE
     Dosage: 30 MG
     Route: 037
     Dates: start: 20210322, end: 20210406

REACTIONS (2)
  - Ascites [Recovering/Resolving]
  - Oedema [Recovering/Resolving]

NARRATIVE: CASE EVENT DATE: 20210607
